FAERS Safety Report 12542183 (Version 3)
Quarter: 2017Q3

REPORT INFORMATION
  Report Type: Spontaneous
  Country: DK (occurrence: DK)
  Receive Date: 20160708
  Receipt Date: 20170710
  Transmission Date: 20171127
  Serious: Yes (Other)
  Sender: FDA-Public Use
  Company Number: DK-SAOL THERAPEUTICS-2016SAO00098

PATIENT
  Age: 39 Year
  Sex: Male

DRUGS (1)
  1. LIORESAL [Suspect]
     Active Substance: BACLOFEN
     Indication: MULTIPLE SCLEROSIS
     Dosage: 290 ?G, \DAY

REACTIONS (6)
  - Implant site infection [Recovered/Resolved]
  - Device kink [Recovered/Resolved]
  - Hyperhidrosis [Recovered/Resolved]
  - Therapy non-responder [Recovered/Resolved]
  - Device issue [Recovered/Resolved]
  - Muscle spasticity [Recovered/Resolved]

NARRATIVE: CASE EVENT DATE: 201407
